FAERS Safety Report 10333411 (Version 1)
Quarter: 2014Q3

REPORT INFORMATION
  Report Type: Spontaneous
  Country: US (occurrence: US)
  Receive Date: 20140722
  Receipt Date: 20140722
  Transmission Date: 20150326
  Serious: No
  Sender: FDA-Public Use
  Company Number: US-SA-2013SA111632

PATIENT
  Age: 83 Year
  Sex: Female

DRUGS (1)
  1. AMBIEN [Suspect]
     Active Substance: ZOLPIDEM TARTRATE
     Indication: INSOMNIA
     Dosage: TAKEN FROM- YEARS AGO
     Route: 048
     Dates: end: 20131026

REACTIONS (2)
  - Heart rate irregular [Recovering/Resolving]
  - Wrong technique in drug usage process [Unknown]
